FAERS Safety Report 8417359 (Version 3)
Quarter: 2013Q2

REPORT INFORMATION
  Report Type: Spontaneous
  Country: US (occurrence: US)
  Receive Date: 20120220
  Receipt Date: 20130415
  Transmission Date: 20140414
  Serious: Yes (Other)
  Sender: FDA-Public Use
  Company Number: US-ROCHE-783596

PATIENT
  Age: 16 Year
  Sex: Male
  Weight: 104.42 kg

DRUGS (1)
  1. ACCUTANE [Suspect]
     Indication: ACNE
     Route: 048
     Dates: start: 200101, end: 200107

REACTIONS (12)
  - Crohn^s disease [Unknown]
  - Inflammatory bowel disease [Unknown]
  - Stress [Unknown]
  - Rash [Unknown]
  - Dry skin [Unknown]
  - Lip dry [Unknown]
  - Epistaxis [Unknown]
  - Headache [Unknown]
  - Vision blurred [Unknown]
  - Arthralgia [Unknown]
  - Mood swings [Unknown]
  - Depression [Unknown]
